FAERS Safety Report 7264791-7 (Version None)
Quarter: 2011Q1

REPORT INFORMATION
  Report Type: 
  Country: None (occurrence: None)
  Receive Date: 20110131
  Receipt Date: 20101210
  Transmission Date: 20110831
  Serious: Yes (Other)
  Sender: FDA-Public Use
  Company Number: CH-US-EMD SERONO, INC.-7038688

PATIENT
  Sex: Female
  Weight: 55 kg

DRUGS (3)
  1. REBIF [Suspect]
     Indication: MULTIPLE SCLEROSIS
     Route: 058
     Dates: start: 20081029, end: 20101101
  2. VITAMIN TAB [Concomitant]
     Dates: start: 20101001
  3. VITAMIN TAB [Concomitant]
     Route: 030
     Dates: start: 20101001

REACTIONS (3)
  - INJECTION SITE HAEMATOMA [None]
  - TYPE 1 DIABETES MELLITUS [None]
  - INJECTION SITE PAIN [None]
